FAERS Safety Report 12927084 (Version 1)
Quarter: 2016Q4

REPORT INFORMATION
  Report Type: Spontaneous
  Country: US (occurrence: US)
  Receive Date: 20161109
  Receipt Date: 20161109
  Transmission Date: 20170207
  Serious: Yes (Death, Hospitalization)
  Sender: FDA-Public Use
  Company Number: None

PATIENT
  Age: 4 Year
  Sex: Female
  Weight: 29 kg

DRUGS (4)
  1. METHOTREXATE. [Suspect]
     Active Substance: METHOTREXATE
     Dosage: 12MG IT GIVE, THEN 38.75 WEEKLY
     Dates: end: 20161023
  2. VINCRISTINE SULFATE. [Suspect]
     Active Substance: VINCRISTINE SULFATE
     Dosage: VCR DOSE 1.3MG ON 9/6 AND 10/11
     Dates: end: 20161011
  3. MERCAPTOPURINE. [Suspect]
     Active Substance: MERCAPTOPURINE
     Dosage: GIVEN 94MG EVERY NIGHT
     Dates: end: 20161022
  4. DEXAMETHASONE. [Suspect]
     Active Substance: DEXAMETHASONE
     Dates: end: 20161015

REACTIONS (33)
  - Acute hepatic failure [None]
  - Septic shock [None]
  - Hepatic encephalopathy [None]
  - Ammonia increased [None]
  - Brain oedema [None]
  - Vomiting [None]
  - Aggression [None]
  - Leukopenia [None]
  - Transaminases increased [None]
  - Hyperbilirubinaemia [None]
  - Pulse abnormal [None]
  - Cerebral disorder [None]
  - Brain herniation [None]
  - Confusional state [None]
  - Gastrointestinal haemorrhage [None]
  - Hypotension [None]
  - Lactic acidosis [None]
  - Metabolic acidosis [None]
  - Mental status changes [None]
  - Haemodynamic instability [None]
  - Heart rate increased [None]
  - Bacterial test positive [None]
  - Hypothermia [None]
  - Seizure [None]
  - Alanine aminotransferase increased [None]
  - Aspartate aminotransferase increased [None]
  - Feeling cold [None]
  - Hypertension [None]
  - Pyrexia [None]
  - Lethargy [None]
  - Bacterial sepsis [None]
  - Hepatic steatosis [None]
  - Histiocytosis haematophagic [None]

NARRATIVE: CASE EVENT DATE: 20161024
